FAERS Safety Report 24021948 (Version 1)
Quarter: 2024Q2

REPORT INFORMATION
  Report Type: Report from Study
  Country: US (occurrence: US)
  Receive Date: 20240627
  Receipt Date: 20240627
  Transmission Date: 20240716
  Serious: No
  Sender: FDA-Public Use
  Company Number: US-ROCHE-3471071

PATIENT
  Age: 53 Year
  Sex: Female

DRUGS (2)
  1. VABYSMO [Suspect]
     Active Substance: FARICIMAB\FARICIMAB-SVOA
     Indication: Retinal artery occlusion
     Dosage: FORM STRENGTH-4 MG/0.05 ML, DATE OF SERVICE: 17/OCT/2023
     Route: 050
  2. VABYSMO [Suspect]
     Active Substance: FARICIMAB\FARICIMAB-SVOA
     Indication: Retinal oedema

REACTIONS (2)
  - Off label use [Unknown]
  - No adverse event [Unknown]
